FAERS Safety Report 4334030-5 (Version None)
Quarter: 2004Q2

REPORT INFORMATION
  Report Type: 
  Country: None (occurrence: None)
  Receive Date: 20040402
  Receipt Date: 20040323
  Transmission Date: 20050107
  Serious: Yes (Hospitalization)
  Sender: FDA-Public Use
  Company Number: 163-20785-04030584

PATIENT
  Age: 54 Year
  Sex: Female

DRUGS (2)
  1. THALOMID [Suspect]
     Indication: MALIGNANT MELANOMA
     Dosage: 400 MG, DAILY, ORAL
     Route: 048
     Dates: start: 20040216, end: 20040308
  2. TEMODAR [Concomitant]

REACTIONS (13)
  - BACTERIAL INFECTION [None]
  - DIABETES MELLITUS [None]
  - DYSPNOEA [None]
  - EPIGLOTTITIS [None]
  - FUNGAL INFECTION [None]
  - HYPERTENSION [None]
  - HYPOPHOSPHATAEMIA [None]
  - MALIGNANT MELANOMA [None]
  - MALIGNANT NEOPLASM PROGRESSION [None]
  - OBSTRUCTIVE AIRWAYS DISORDER [None]
  - PNEUMONIA [None]
  - PRURITUS [None]
  - RASH [None]
